FAERS Safety Report 5359576-2 (Version None)
Quarter: 2007Q2

REPORT INFORMATION
  Report Type: 
  Country: None (occurrence: None)
  Receive Date: 20070615
  Receipt Date: 20070606
  Transmission Date: 20071010
  Serious: Yes (Life-Threatening)
  Sender: FDA-Public Use
  Company Number: JP-PFIZER INC-2007047547

PATIENT
  Age: 1 Year
  Sex: Female

DRUGS (8)
  1. CEFPODOXIME PROXETIL TABLET [Suspect]
     Indication: PNEUMONIA
  2. THEOPHYLLINE [Concomitant]
  3. MUCOSOLVAN [Concomitant]
  4. PERIACTIN [Concomitant]
  5. DIHYDROCODEINE PHOSPHATE [Concomitant]
  6. MUCODYNE [Concomitant]
  7. MEPTIN [Concomitant]
  8. HOKUNALIN [Concomitant]

REACTIONS (1)
  - RHABDOMYOLYSIS [None]
